FAERS Safety Report 7156868-1 (Version None)
Quarter: 2010Q4

REPORT INFORMATION
  Report Type: 
  Country: None (occurrence: None)
  Receive Date: 20101214
  Receipt Date: 20101130
  Transmission Date: 20110411
  Serious: Yes (Hospitalization, Disabling, Other)
  Sender: FDA-Public Use
  Company Number: PHHY2010GB16490

PATIENT
  Age: 64 Year
  Sex: Female

DRUGS (13)
  1. DICLOFENAC [Suspect]
     Dosage: 50 MG, TID
     Route: 048
  2. RIVAROXABAN [Suspect]
     Indication: HIP ARTHROPLASTY
     Dosage: 10 MG, QD
     Route: 048
     Dates: start: 20091218, end: 20091231
  3. DICLOFENAC [Concomitant]
     Dosage: 50 MG, TID
     Route: 048
  4. DICLOFENAC [Concomitant]
     Dosage: 10 MG, QD
     Route: 048
  5. AMITRIPTYLINE [Concomitant]
     Dosage: 25 MG, QD
     Route: 048
  6. AMITRIPTYLINE [Concomitant]
     Dosage: 150 MG, QD
  7. LISINOPRIL [Concomitant]
     Dosage: 10 MG, UNK
     Route: 048
  8. LISINOPRIL [Concomitant]
     Dosage: 200 MG, QD
  9. FERROUS SULFATE TAB [Concomitant]
     Dosage: UNK
     Dates: start: 20091231
  10. FLUCLOXACILLIN [Concomitant]
     Dosage: 25 MG, QD
     Route: 048
     Dates: start: 20091228
  11. RANITIDINE [Concomitant]
     Dosage: 1 G, QID
     Dates: start: 20091231
  12. TRAMADOL [Concomitant]
     Dosage: UNK
     Dates: start: 20091231
  13. PARACETAMOL [Concomitant]
     Dosage: UNK
     Dates: start: 20091231

REACTIONS (9)
  - ACTIVATED PARTIAL THROMBOPLASTIN TIME PROLONGED [None]
  - BLOOD FIBRINOGEN INCREASED [None]
  - COAGULATION FACTOR X LEVEL INCREASED [None]
  - HAEMATOMA [None]
  - HIP ARTHROPLASTY [None]
  - POST PROCEDURAL HAEMORRHAGE [None]
  - PROTHROMBIN TIME PROLONGED [None]
  - WOUND HAEMORRHAGE [None]
  - WOUND SECRETION [None]
